FAERS Safety Report 10136235 (Version 1)
Quarter: 2014Q2

REPORT INFORMATION
  Report Type: Spontaneous
  Country: GB (occurrence: GB)
  Receive Date: 20140429
  Receipt Date: 20140429
  Transmission Date: 20141212
  Serious: Yes (Hospitalization)
  Sender: FDA-Public Use
  Company Number: GB-ROCHE-1389040

PATIENT
  Age: 68 Year
  Sex: Female

DRUGS (8)
  1. NAPROXEN [Suspect]
     Indication: RHEUMATOID ARTHRITIS
     Route: 048
     Dates: end: 20140202
  2. CO-CODAMOL [Concomitant]
  3. FUROSEMIDE [Concomitant]
  4. METOCLOPRAMIDE [Concomitant]
  5. MIRTAZAPINE [Concomitant]
  6. OMEPRAZOLE [Concomitant]
  7. RANITIDINE [Concomitant]
  8. SULFASALAZINE [Concomitant]

REACTIONS (4)
  - Renal failure acute [Recovered/Resolved]
  - Malaise [Unknown]
  - Dyspnoea [Unknown]
  - Acute myocardial infarction [Recovering/Resolving]
